FAERS Safety Report 14642112 (Version 1)
Quarter: 2018Q1

REPORT INFORMATION
  Report Type: Spontaneous
  Country: US (occurrence: US)
  Receive Date: 20180315
  Receipt Date: 20180315
  Transmission Date: 20180509
  Serious: Yes (Other)
  Sender: FDA-Public Use
  Company Number: None

PATIENT
  Age: 66 Year
  Sex: Female
  Weight: 90.9 kg

DRUGS (9)
  1. ATENOLOL. [Suspect]
     Active Substance: ATENOLOL
     Indication: HYPERTENSION
     Dosage: ?          QUANTITY:1 TABLET(S);?
     Route: 048
     Dates: start: 20180309, end: 20180309
  2. COQ10 [Concomitant]
     Active Substance: UBIDECARENONE
  3. LUTEIN [Concomitant]
     Active Substance: LUTEIN
  4. CKIBAZEPAM [Concomitant]
  5. VITAMINS [Concomitant]
     Active Substance: VITAMINS
  6. ASPIRIN. [Concomitant]
     Active Substance: ASPIRIN
  7. RAMIPRIL. [Concomitant]
     Active Substance: RAMIPRIL
  8. NORVASC [Concomitant]
     Active Substance: AMLODIPINE BESYLATE
  9. VITAMIN D [Concomitant]
     Active Substance: CHOLECALCIFEROL

REACTIONS (4)
  - Dizziness [None]
  - Product substitution issue [None]
  - Dyspnoea [None]
  - Disorientation [None]

NARRATIVE: CASE EVENT DATE: 20180309
